FAERS Safety Report 10149091 (Version 1)
Quarter: 2014Q2

REPORT INFORMATION
  Report Type: Spontaneous
  Country: US (occurrence: None)
  Receive Date: 20140501
  Receipt Date: 20140501
  Transmission Date: 20141212
  Serious: Yes (Hospitalization)
  Sender: FDA-Public Use
  Company Number: None

PATIENT
  Age: 68 Year
  Sex: Female

DRUGS (7)
  1. HYDROMORPHONE [Suspect]
     Indication: PAIN
     Route: 042
     Dates: start: 20130611, end: 20130611
  2. ASPIRIN [Concomitant]
  3. SIMIVASTATIN [Concomitant]
  4. CHOLECALCIFEROL [Concomitant]
  5. PAROXETINE [Concomitant]
  6. HEPARIN [Concomitant]
  7. IBUPROFEN [Concomitant]

REACTIONS (2)
  - Unresponsive to stimuli [None]
  - Respiratory rate decreased [None]
